FAERS Safety Report 18890727 (Version 2)
Quarter: 2021Q1

REPORT INFORMATION
  Report Type: Spontaneous
  Country: US (occurrence: US)
  Receive Date: 20210215
  Receipt Date: 20210218
  Transmission Date: 20210420
  Serious: Yes (Life-Threatening, Hospitalization, Disabling)
  Sender: FDA-Public Use
  Company Number: US-009507513-2102USA003936

PATIENT

DRUGS (1)
  1. ZOCOR [Suspect]
     Active Substance: SIMVASTATIN
     Indication: BLOOD CHOLESTEROL
     Dosage: UNK
     Route: 048

REACTIONS (10)
  - Gait disturbance [Recovering/Resolving]
  - Musculoskeletal stiffness [Unknown]
  - Head injury [Unknown]
  - Pain [Unknown]
  - Adverse event [Unknown]
  - Drug ineffective [Unknown]
  - Muscle spasms [Unknown]
  - Fear [Unknown]
  - Fall [Unknown]
  - Contusion [Unknown]

NARRATIVE: CASE EVENT DATE: 2015
